FAERS Safety Report 13943407 (Version 1)
Quarter: 2017Q3

REPORT INFORMATION
  Report Type: Spontaneous
  Country: US (occurrence: US)
  Receive Date: 20170907
  Receipt Date: 20170907
  Transmission Date: 20171128
  Serious: Yes (Life-Threatening, Disabling, Other)
  Sender: FDA-Public Use
  Company Number: US-TEVA-802533USA

PATIENT
  Sex: Male

DRUGS (1)
  1. AMIODARONE [Suspect]
     Active Substance: AMIODARONE
     Indication: ATRIAL FIBRILLATION
     Route: 065
     Dates: start: 200708

REACTIONS (12)
  - Dizziness [Unknown]
  - Hypothyroidism [Unknown]
  - Toxicity to various agents [Unknown]
  - Adverse event [Unknown]
  - Blindness [Unknown]
  - Syncope [Unknown]
  - Off label use [Unknown]
  - Visual field defect [Unknown]
  - Fatigue [Unknown]
  - Coordination abnormal [Unknown]
  - Visual impairment [Unknown]
  - Loss of personal independence in daily activities [Unknown]

NARRATIVE: CASE EVENT DATE: 2008
